FAERS Safety Report 13292934 (Version 1)
Quarter: 2017Q1

REPORT INFORMATION
  Report Type: Spontaneous
  Country: NL (occurrence: NL)
  Receive Date: 20170303
  Receipt Date: 20170303
  Transmission Date: 20170428
  Serious: Yes (Hospitalization)
  Sender: FDA-Public Use
  Company Number: NL-ASTRAZENECA-2017SE20931

PATIENT
  Age: 68 Year
  Sex: Male
  Weight: 90 kg

DRUGS (8)
  1. FERROFUMARAAT [Concomitant]
     Dosage: 3 KEER PER DAG 1 STUK(S)
     Route: 048
     Dates: start: 2010
  2. BUMETANIDE. [Concomitant]
     Active Substance: BUMETANIDE
     Route: 048
     Dates: start: 201610
  3. ASCAL [Concomitant]
     Active Substance: CARBASPIRIN
     Dosage: 1 KEER PER DAG 1 STUK(S)
     Route: 048
     Dates: start: 20050427
  4. PERINDOPRIL [Concomitant]
     Active Substance: PERINDOPRIL
     Route: 048
     Dates: start: 2010
  5. SOTALOL HYDROCHLORIDE. [Concomitant]
     Active Substance: SOTALOL HYDROCHLORIDE
     Dosage: 3 KEER PER DAG 1 STUK(S)
     Route: 048
     Dates: start: 20100313
  6. SPIRONOLACTONE. [Concomitant]
     Active Substance: SPIRONOLACTONE
     Route: 048
     Dates: start: 2010
  7. ATORVASTATIN [Concomitant]
     Active Substance: ATORVASTATIN
     Dosage: 1 KEER PER DAG 1 STUK(S)
     Route: 048
     Dates: start: 20050427
  8. ESOMEPRAZOLE [Suspect]
     Active Substance: ESOMEPRAZOLE
     Indication: OESOPHAGEAL DISORDER
     Route: 048
     Dates: start: 2015

REACTIONS (1)
  - Gastrointestinal necrosis [Recovered/Resolved with Sequelae]

NARRATIVE: CASE EVENT DATE: 20161207
